FAERS Safety Report 23183747 (Version 5)
Quarter: 2025Q3

REPORT INFORMATION
  Report Type: Spontaneous
  Country: JP (occurrence: JP)
  Receive Date: 20231114
  Receipt Date: 20250907
  Transmission Date: 20251021
  Serious: Yes (Death, Other)
  Sender: AMGEN
  Company Number: JP-Vifor (International) Inc.-VIT-2023-08984

PATIENT

DRUGS (6)
  1. TAVNEOS [Suspect]
     Active Substance: AVACOPAN
     Indication: Anti-neutrophil cytoplasmic antibody positive vasculitis
     Dosage: 60 MG, QD
     Route: 048
  2. TAVNEOS [Suspect]
     Active Substance: AVACOPAN
     Route: 065
  3. RITUXIMAB [Concomitant]
     Active Substance: RITUXIMAB
     Route: 065
  4. PREDNISOLONE [Concomitant]
     Active Substance: PREDNISOLONE
     Dosage: 20 MILLIGRAM, QD
     Route: 065
  5. PREDNISOLONE [Concomitant]
     Active Substance: PREDNISOLONE
     Route: 065
  6. CYCLOPHOSPHAMIDE [Concomitant]
     Active Substance: CYCLOPHOSPHAMIDE
     Route: 065

REACTIONS (20)
  - Lung neoplasm malignant [Fatal]
  - Large intestine perforation [Fatal]
  - Interstitial lung disease [Unknown]
  - Bronchopulmonary aspergillosis [Unknown]
  - Diabetes mellitus [Unknown]
  - Cholelithiasis [Unknown]
  - Cholecystitis [Unknown]
  - Deep vein thrombosis [Unknown]
  - Renal impairment [Unknown]
  - Drug-induced liver injury [Recovering/Resolving]
  - Pneumonia [Recovering/Resolving]
  - Pyrexia [Unknown]
  - Sinusitis [Recovering/Resolving]
  - Hyperlipidaemia [Unknown]
  - Hypertension [Unknown]
  - Nausea [Unknown]
  - Chronic obstructive pulmonary disease [Unknown]
  - Herpes zoster [Unknown]
  - COVID-19 [Unknown]
  - Intentional underdose [Unknown]
